FAERS Safety Report 9132361 (Version 3)
Quarter: 2013Q1

REPORT INFORMATION
  Report Type: Spontaneous
  Country: JP (occurrence: JP)
  Receive Date: 20130301
  Receipt Date: 20130321
  Transmission Date: 20140127
  Serious: Yes (Life-Threatening)
  Sender: FDA-Public Use
  Company Number: JP-ROCHE-1194743

PATIENT
  Age: 40 Year
  Sex: Male
  Weight: 53 kg

DRUGS (7)
  1. AVASTIN [Suspect]
     Indication: RECTAL CANCER RECURRENT
     Route: 041
     Dates: start: 20121019, end: 20121130
  2. AVASTIN [Suspect]
     Indication: RECTAL CANCER RECURRENT
     Route: 041
     Dates: start: 20130121, end: 20130121
  3. ELPLAT [Suspect]
     Indication: RECTAL CANCER RECURRENT
     Route: 041
     Dates: start: 20121019, end: 20121130
  4. ELPLAT [Suspect]
     Indication: RECTAL CANCER RECURRENT
     Route: 041
     Dates: start: 20130121, end: 20130121
  5. LEVOFOLINATE [Concomitant]
     Indication: RECTAL CANCER RECURRENT
     Dosage: DOSAGE IS UNCERTAIN
     Route: 041
     Dates: start: 20121019, end: 20121130
  6. 5-FU [Concomitant]
     Indication: RECTAL CANCER RECURRENT
     Dosage: UNCERTAIN DOSAGE AND 21 COURSES
     Route: 040
     Dates: start: 20121019, end: 20121130
  7. 5-FU [Concomitant]
     Indication: RECTAL CANCER RECURRENT
     Dosage: UNCERTAIN DOSAGE AND 21 COURSES
     Route: 041
     Dates: start: 20121019, end: 2012

REACTIONS (2)
  - Acute hepatic failure [Recovered/Resolved]
  - Renal failure acute [Recovered/Resolved]
